FAERS Safety Report 24060364 (Version 1)
Quarter: 2024Q3

REPORT INFORMATION
  Report Type: Spontaneous
  Country: IT (occurrence: IT)
  Receive Date: 20240708
  Receipt Date: 20240708
  Transmission Date: 20241016
  Serious: Yes (Other)
  Sender: MYLAN
  Company Number: IT-MYLANLABS-2024M1061964

PATIENT
  Sex: Female

DRUGS (1)
  1. ESTRADIOL [Suspect]
     Active Substance: ESTRADIOL
     Indication: Polycystic ovarian syndrome
     Dosage: UNK
     Route: 065

REACTIONS (3)
  - Long QT syndrome [Unknown]
  - Condition aggravated [Unknown]
  - Off label use [Unknown]
